FAERS Safety Report 8721236 (Version 2)
Quarter: 2012Q4

REPORT INFORMATION
  Report Type: 
  Country: JP (occurrence: JP)
  Receive Date: 20120813
  Receipt Date: 20121108
  Transmission Date: 20130627
  Serious: Yes (Hospitalization, Other)
  Sender: FDA-Public Use
  Company Number: JP-AMGEN-JPNCT2012050227

PATIENT
  Age: 86 Year
  Sex: Female
  Weight: 46 kg

DRUGS (32)
  1. DARBEPOETIN ALFA [Suspect]
     Indication: NEPHROGENIC ANAEMIA
     Dosage: 30 mug, qd
     Route: 058
     Dates: start: 20110420, end: 20110420
  2. DARBEPOETIN ALFA [Suspect]
     Dosage: 60 mug, q2wk
     Route: 058
     Dates: start: 20110613, end: 20110627
  3. DARBEPOETIN ALFA [Suspect]
     Dosage: 30 mug, q2wk
     Route: 058
     Dates: start: 20110808, end: 20110822
  4. DARBEPOETIN ALFA [Suspect]
     Dosage: 30 mug, q2wk
     Route: 058
     Dates: start: 20110920, end: 20111004
  5. DARBEPOETIN ALFA [Suspect]
     Dosage: 30 mug, q4wk
     Route: 058
     Dates: start: 20111111, end: 20111209
  6. DARBEPOETIN ALFA [Suspect]
     Dosage: 30 mug, q2wk
     Route: 058
     Dates: start: 20111215, end: 20111229
  7. DARBEPOETIN ALFA [Suspect]
     Dosage: 30 mug, UNK
     Route: 058
     Dates: start: 20120113, end: 20120113
  8. DARBEPOETIN ALFA [Suspect]
     Dosage: 30 mug, UNK
     Route: 058
     Dates: start: 20120201, end: 20120208
  9. DARBEPOETIN ALFA [Suspect]
     Dosage: 30 mug, UNK
     Route: 040
     Dates: start: 20120215, end: 20120229
  10. CALBLOCK [Concomitant]
     Dosage: UNK
     Route: 048
  11. AMARYL [Concomitant]
     Dosage: UNK
     Route: 048
  12. FUROSEMIDE [Concomitant]
     Indication: NEPHROSCLEROSIS
     Dosage: Uncertainty
     Route: 048
  13. NU-LOTAN [Concomitant]
     Indication: NEPHROSCLEROSIS
     Dosage: Uncertainty
     Route: 048
  14. ADALAT CR [Concomitant]
     Dosage: UNK
     Route: 048
  15. CARDENALIN [Concomitant]
     Dosage: Uncertainty
     Route: 048
  16. SENNAL [Concomitant]
     Dosage: Uncertainty
     Route: 048
  17. OMEPRAL [Concomitant]
     Dosage: Uncertainty
     Route: 048
  18. HYPEN [Concomitant]
     Dosage: Uncertainty
     Route: 048
  19. NEUROTROPIN [Concomitant]
     Dosage: Uncertainty
     Route: 048
  20. BUP-4 [Concomitant]
     Dosage: Uncertainty
     Route: 048
  21. GLACTIV [Concomitant]
     Dosage: Uncertainty
     Route: 048
  22. MECOBALAMIN [Concomitant]
     Dosage: Uncertainty
     Route: 048
  23. RILYFTER [Concomitant]
     Dosage: Uncertainty
     Route: 048
  24. FASTIC [Concomitant]
     Dosage: Uncertainty
     Route: 048
  25. VOLTAREN [Concomitant]
     Dosage: Uncertainty
     Route: 054
  26. COCARL [Concomitant]
     Dosage: Uncertainty
     Route: 048
  27. MEDET [Concomitant]
     Dosage: Uncertainty
     Route: 048
  28. NESINA [Concomitant]
     Dosage: Uncertainty
     Route: 048
  29. NORVASC [Concomitant]
     Dosage: Uncertainty
     Route: 048
  30. LANTUS [Concomitant]
     Dosage: Uncertainty
     Route: 065
  31. NOVORAPID [Concomitant]
     Dosage: Uncertainty
     Route: 065
  32. HUMALOG MIX [Concomitant]
     Dosage: Uncertainty
     Route: 065

REACTIONS (14)
  - Cardiac failure chronic [Recovered/Resolved]
  - Diabetes mellitus [Recovered/Resolved]
  - Hypoglycaemia [Recovered/Resolved]
  - Blood pressure decreased [Recovered/Resolved]
  - Delirium [Recovering/Resolving]
  - Dementia [Recovering/Resolving]
  - Femoral neck fracture [Recovered/Resolved with Sequelae]
  - Bradycardia [Recovering/Resolving]
  - Neurosis [Recovering/Resolving]
  - Sciatica [Recovering/Resolving]
  - Deep vein thrombosis [Unknown]
  - Pruritus [Recovering/Resolving]
  - Cystitis [Recovered/Resolved]
  - Postoperative wound infection [Recovered/Resolved]
